FAERS Safety Report 14838734 (Version 2)
Quarter: 2019Q1

REPORT INFORMATION
  Report Type: Report from Study
  Country: CA (occurrence: CA)
  Receive Date: 20180502
  Receipt Date: 20190116
  Transmission Date: 20190417
  Serious: Yes (Death, Other)
  Sender: FDA-Public Use
  Company Number: CA-009507513-1803CAN010434

PATIENT
  Age: 66 Year
  Sex: Male
  Weight: 66 kg

DRUGS (1)
  1. KEYTRUDA [Suspect]
     Active Substance: PEMBROLIZUMAB
     Indication: BLADDER TRANSITIONAL CELL CARCINOMA STAGE IV
     Dosage: 200 MG, Q3WEEKS (Q21D)
     Route: 042
     Dates: start: 20171208, end: 20180302

REACTIONS (5)
  - Death [Fatal]
  - Rash [Recovered/Resolved]
  - Hydrocephalus [Unknown]
  - Malignant neoplasm progression [Unknown]
  - Headache [Not Recovered/Not Resolved]

NARRATIVE: CASE EVENT DATE: 201803
